FAERS Safety Report 9669900 (Version 1)
Quarter: 2013Q4

REPORT INFORMATION
  Report Type: Report from Study
  Country: BR (occurrence: BR)
  Receive Date: 20131105
  Receipt Date: 20131105
  Transmission Date: 20140711
  Serious: Yes (Other)
  Sender: FDA-Public Use
  Company Number: PHHY2013BR125299

PATIENT
  Sex: Female

DRUGS (2)
  1. STALEVO [Suspect]
     Dosage: 2 DF (50 MG, 1 TABLET AT BREAKFAST AND 1 TABLET AT 2 PM), DAILY
     Route: 048
  2. PROLOPA [Suspect]
     Indication: PARKINSON^S DISEASE
     Dosage: 3 DF, DAILY
     Route: 048
     Dates: start: 201306

REACTIONS (5)
  - Eye movement disorder [Recovered/Resolved]
  - Unresponsive to stimuli [Recovered/Resolved]
  - Paralysis [Recovered/Resolved]
  - Pallor [Recovered/Resolved]
  - Dizziness [Recovered/Resolved]
